FAERS Safety Report 9523870 (Version 1)
Quarter: 2013Q1

REPORT INFORMATION
  Report Type: Spontaneous
  Country: US (occurrence: None)
  Receive Date: 20130305
  Receipt Date: 20130305
  Transmission Date: 20140127
  Serious: Yes (Hospitalization, Other)
  Sender: FDA-Public Use
  Company Number: 163-21880-12020437

PATIENT
  Age: 69 Year
  Sex: Male
  Weight: 61.24 kg

DRUGS (12)
  1. REVLIMID (LENALIDOMIDE) (CAPSULES)?? [Suspect]
     Indication: PLASMA CELL MYELOMA
     Dosage: 5 MG, DAILY, PO
     Route: 048
     Dates: start: 20120105, end: 20120117
  2. ACYCLOVIR (ACICLOVIR) (UNKNOWN) [Concomitant]
  3. DOXAZOSIN (DOXAZOSIN) (UNKNOWN) [Concomitant]
  4. HYDRALAZINE (HYDRALAZINE) (UNKNOWN) [Concomitant]
  5. AMLODIPINE (AMLODIPINE) (UNKNOWN) [Concomitant]
  6. SIMVASTATIN(SIMVASTATIN) (UNKNOWN) [Concomitant]
  7. DEXAMETHASONE (DEXAMETHASONE) (UNKNOWN) [Concomitant]
  8. VENLAFAXINE VENLAFAXINE) (UNKNOWN) [Concomitant]
  9. CARVEDILOL (CARVEDILOL) (UNKNOWN) [Concomitant]
  10. INSULIN (INSULIN) (UNKNOWN) [Concomitant]
  11. ISOSORBIDE (ISOSORBIDE) (UNKNOWN) [Concomitant]
  12. PRILOSEC (OMEPRAZOLE) (UNKNOWN) [Concomitant]

REACTIONS (2)
  - Spinal compression fracture [None]
  - Blood potassium decreased [None]
